FAERS Safety Report 7726325-X (Version None)
Quarter: 2011Q3

REPORT INFORMATION
  Report Type: 
  Country: None (occurrence: None)
  Receive Date: 20110902
  Receipt Date: 20110831
  Transmission Date: 20111222
  Serious: Yes (Other)
  Sender: FDA-Public Use
  Company Number: JP-PFIZER INC-2011203684

PATIENT
  Age: 62 Year
  Sex: Male

DRUGS (5)
  1. VARENICLINE TARTRATE [Suspect]
     Dosage: 2 MG, DAILY
     Route: 048
     Dates: start: 20110415, end: 20110802
  2. VARENICLINE TARTRATE [Suspect]
     Dosage: UNK
     Route: 048
     Dates: start: 20110811, end: 20110811
  3. VARENICLINE TARTRATE [Suspect]
     Indication: SMOKING CESSATION THERAPY
     Dosage: 0.5 MG, DAILY
     Route: 048
     Dates: start: 20110408, end: 20110410
  4. VARENICLINE TARTRATE [Suspect]
     Dosage: 1 MG, DAILY
     Route: 048
     Dates: start: 20110411, end: 20110414
  5. VARENICLINE TARTRATE [Suspect]
     Dosage: 2 MG, DAILY
     Route: 048
     Dates: start: 20110822

REACTIONS (5)
  - HEAD INJURY [None]
  - SKIN DISORDER [None]
  - ALTERED STATE OF CONSCIOUSNESS [None]
  - SCREAMING [None]
  - PERSONALITY DISORDER [None]
